FAERS Safety Report 13034391 (Version 1)
Quarter: 2016Q4

REPORT INFORMATION
  Report Type: Spontaneous
  Country: US (occurrence: US)
  Receive Date: 20161216
  Receipt Date: 20161216
  Transmission Date: 20170207
  Serious: No
  Sender: FDA-Public Use
  Company Number: US-JNJFOC-20161123828

PATIENT
  Sex: Female
  Weight: 49.9 kg

DRUGS (5)
  1. WOMENS ROGAINE UNSCENTED [Suspect]
     Active Substance: MINOXIDIL
     Indication: ALOPECIA
     Dosage: ONE SQUIRT
     Route: 061
     Dates: start: 2016
  2. WOMENS ROGAINE UNSCENTED [Suspect]
     Active Substance: MINOXIDIL
     Indication: ALOPECIA
     Dosage: ONE SQUIRT
     Route: 061
     Dates: start: 2016, end: 20161120
  3. BABY ASPIRIN [Concomitant]
     Active Substance: ASPIRIN
     Indication: CARDIAC DISORDER
     Route: 065
  4. LIPITOR [Concomitant]
     Active Substance: ATORVASTATIN CALCIUM
     Indication: BLOOD CHOLESTEROL INCREASED
     Route: 065
  5. PREVAGEN [Concomitant]
     Active Substance: DIETARY SUPPLEMENT
     Indication: CEREBRAL DISORDER
     Route: 065

REACTIONS (3)
  - Hair colour changes [Not Recovered/Not Resolved]
  - Expired product administered [Unknown]
  - Drug administration error [Not Recovered/Not Resolved]
